FAERS Safety Report 5359747-5 (Version None)
Quarter: 2007Q2

REPORT INFORMATION
  Report Type: 
  Country: None (occurrence: None)
  Receive Date: 20070615
  Receipt Date: 20070604
  Transmission Date: 20071010
  Serious: Yes (Other)
  Sender: FDA-Public Use
  Company Number: NO-PFIZER INC-2007047695

PATIENT
  Age: 40 Year
  Sex: Female

DRUGS (1)
  1. AZITROMAX [Suspect]

REACTIONS (1)
  - ABORTION [None]
